FAERS Safety Report 15295798 (Version 6)
Quarter: 2019Q2

REPORT INFORMATION
  Report Type: Spontaneous
  Country: JP (occurrence: JP)
  Receive Date: 20180820
  Receipt Date: 20190520
  Transmission Date: 20190711
  Serious: Yes (Life-Threatening, Hospitalization, Other)
  Sender: FDA-Public Use
  Company Number: JP-009507513-1808JPN001248J

PATIENT
  Age: 55 Year
  Sex: Female
  Weight: 37 kg

DRUGS (11)
  1. TAKECAB [Concomitant]
     Active Substance: VONOPRAZAN FUMURATE
     Dosage: 20 MG, UNK
     Route: 048
  2. LOXOPROFEN [Concomitant]
     Active Substance: LOXOPROFEN
     Dosage: 60 MG, UNK
     Route: 048
  3. REBAMIPIDE [Concomitant]
     Active Substance: REBAMIPIDE
     Dosage: 100 MG, UNK
     Route: 048
  4. KEYTRUDA [Suspect]
     Active Substance: PEMBROLIZUMAB
     Indication: TRANSITIONAL CELL CARCINOMA
     Dosage: 200 MILLIGRAM, Q3W
     Route: 041
     Dates: start: 20180625, end: 20180802
  5. MAGMITT [Concomitant]
     Active Substance: MAGNESIUM OXIDE
     Dosage: 330 MG, UNK
     Route: 048
  6. REFLEX [Concomitant]
     Active Substance: MIRTAZAPINE
     Dosage: 15 MG, UNK
     Route: 048
  7. ABSTRAL [Suspect]
     Active Substance: FENTANYL CITRATE
     Indication: PAIN
     Dosage: 100 MICROGRAM
     Route: 060
     Dates: start: 20180723, end: 20180809
  8. FENTOS [Concomitant]
     Active Substance: FENTANYL
     Dosage: 2 MG, UNK
     Route: 051
  9. TERPERAN [Concomitant]
     Active Substance: METOCLOPRAMIDE HYDROCHLORIDE
     Dosage: 5 MG, UNK
     Route: 048
  10. AMITIZA [Concomitant]
     Active Substance: LUBIPROSTONE
     Dosage: 24 MICROGRAM
     Route: 048
  11. SENNOSIDE [Concomitant]
     Active Substance: SENNOSIDES
     Dosage: 12 MG, UNK
     Route: 048

REACTIONS (1)
  - Pachymeningitis [Not Recovered/Not Resolved]

NARRATIVE: CASE EVENT DATE: 20180814
